FAERS Safety Report 10418236 (Version 2)
Quarter: 2014Q3

REPORT INFORMATION
  Report Type: Spontaneous
  Country: US (occurrence: None)
  Receive Date: 20140827
  Receipt Date: 20140910
  Transmission Date: 20150326
  Serious: Yes (Hospitalization)
  Sender: FDA-Public Use
  Company Number: KAD201408-000960

PATIENT
  Age: 56 Year
  Sex: Male
  Weight: 137.8 kg

DRUGS (3)
  1. PEGASYS [Suspect]
     Active Substance: PEGINTERFERON ALFA-2A
     Route: 058
     Dates: start: 20131008, end: 20140728
  2. VICTRELIS [Suspect]
     Active Substance: BOCEPREVIR
     Dosage: 2400 MG DAILY , 4-200 MG
     Dates: start: 20131008, end: 20140728
  3. RIBASPHERE [Suspect]
     Active Substance: RIBAVIRIN
     Indication: HEPATITIS C
     Dosage: 1200 MG (600 MG AM, 600 MG PM)
     Route: 048
     Dates: start: 20131008, end: 20140728

REACTIONS (4)
  - Asthenia [None]
  - Syncope [None]
  - Nausea [None]
  - Tinnitus [None]

NARRATIVE: CASE EVENT DATE: 20140624
